FAERS Safety Report 7487260-8 (Version None)
Quarter: 2011Q2

REPORT INFORMATION
  Report Type: 
  Country: None (occurrence: None)
  Receive Date: 20110518
  Receipt Date: 20110503
  Transmission Date: 20111010
  Serious: Yes (Other)
  Sender: FDA-Public Use
  Company Number: MX-JNJFOC-20110503971

PATIENT
  Age: 56 Year
  Sex: Male

DRUGS (1)
  1. RISPERDAL CONSTA [Suspect]
     Indication: SCHIZOPHRENIA
     Route: 030

REACTIONS (10)
  - DRUG DOSE OMISSION [None]
  - DEPRESSED MOOD [None]
  - PARANOIA [None]
  - AGGRESSION [None]
  - WITHDRAWAL SYNDROME [None]
  - DECREASED APPETITE [None]
  - SUICIDAL IDEATION [None]
  - TREMOR [None]
  - CONDUCT DISORDER [None]
  - SLEEP DISORDER [None]
